FAERS Safety Report 17664758 (Version 1)
Quarter: 2020Q2

REPORT INFORMATION
  Report Type: Spontaneous
  Country: US (occurrence: US)
  Receive Date: 20200414
  Receipt Date: 20200414
  Transmission Date: 20200713
  Serious: No
  Sender: FDA-Public Use
  Company Number: US-SA-2020SA092458

PATIENT
  Sex: Female

DRUGS (6)
  1. ALLEGRA ALLERGY [Concomitant]
     Active Substance: FEXOFENADINE HYDROCHLORIDE
  2. DUPIXENT [Suspect]
     Active Substance: DUPILUMAB
     Dosage: 300 MG, QOW
     Route: 058
  3. CALCIUM [Concomitant]
     Active Substance: CALCIUM
  4. VITAMIN C [Concomitant]
     Active Substance: ASCORBIC ACID
  5. VITAMIN E [Concomitant]
     Active Substance: .ALPHA.-TOCOPHEROL
  6. VITAMIN D [VITAMIN D NOS] [Concomitant]
     Active Substance: VITAMIN D NOS

REACTIONS (7)
  - Pruritus [Unknown]
  - Nasal congestion [Unknown]
  - Influenza like illness [Unknown]
  - Rhinorrhoea [Not Recovered/Not Resolved]
  - Swelling of eyelid [Unknown]
  - Sneezing [Unknown]
  - Discomfort [Unknown]
